FAERS Safety Report 11714222 (Version 1)
Quarter: 2015Q4

REPORT INFORMATION
  Report Type: Spontaneous
  Country: US (occurrence: None)
  Receive Date: 20151106
  Receipt Date: 20151106
  Transmission Date: 20160304
  Serious: Yes (Hospitalization, Other)
  Sender: FDA-Public Use
  Company Number: None

PATIENT
  Age: 39 Year
  Sex: Female
  Weight: 74.84 kg

DRUGS (6)
  1. IRON [Concomitant]
     Active Substance: IRON
  2. LITHIUM. [Concomitant]
     Active Substance: LITHIUM
  3. UNITHROID [Concomitant]
     Active Substance: LEVOTHYROXINE SODIUM
  4. LEVAQUIN [Suspect]
     Active Substance: LEVOFLOXACIN
     Indication: SINUSITIS
     Dosage: A WEEK OR TEN DAYS?I DON^T RECALL
     Route: 048
  5. KLONOPIN [Concomitant]
     Active Substance: CLONAZEPAM
  6. VITAMIN D [Concomitant]
     Active Substance: CHOLECALCIFEROL

REACTIONS (4)
  - Agitation [None]
  - Anxiety [None]
  - Insomnia [None]
  - Mania [None]
